FAERS Safety Report 25786851 (Version 2)
Quarter: 2025Q4

REPORT INFORMATION
  Report Type: Spontaneous
  Country: AU (occurrence: AU)
  Receive Date: 20250910
  Receipt Date: 20251103
  Transmission Date: 20260118
  Serious: Yes (Hospitalization)
  Sender: ROCHE
  Company Number: AU-ROCHE-10000368785

PATIENT
  Age: 17 Year
  Sex: Male
  Weight: 66.8 kg

DRUGS (3)
  1. EVRYSDI [Suspect]
     Active Substance: RISDIPLAM
     Indication: Spinal muscular atrophy
     Route: 048
  2. GABAPENTIN [Concomitant]
     Active Substance: GABAPENTIN
  3. VITAMIN C GUMMY [Concomitant]

REACTIONS (8)
  - Malaise [Unknown]
  - Viral infection [Unknown]
  - Fluid imbalance [Unknown]
  - Nephrolithiasis [Unknown]
  - Muscular weakness [Unknown]
  - Snoring [Unknown]
  - Sleep disorder [Unknown]
  - Constipation [Unknown]
